FAERS Safety Report 6035779-9 (Version None)
Quarter: 2009Q1

REPORT INFORMATION
  Report Type: 
  Country: None (occurrence: None)
  Receive Date: 20090113
  Receipt Date: 20090105
  Transmission Date: 20090719
  Serious: Yes (Hospitalization)
  Sender: FDA-Public Use
  Company Number: US-BIOGENIDEC-2008BI031764

PATIENT
  Age: 40 Year
  Sex: Female

DRUGS (1)
  1. TYSABRI [Suspect]
     Indication: MULTIPLE SCLEROSIS
     Route: 042
     Dates: start: 20081027

REACTIONS (7)
  - DIZZINESS [None]
  - HERNIA REPAIR [None]
  - MALAISE [None]
  - MULTIPLE SCLEROSIS RELAPSE [None]
  - PAIN [None]
  - SCAR EXCISION [None]
  - SOMNOLENCE [None]
